FAERS Safety Report 19729754 (Version 1)
Quarter: 2021Q3

REPORT INFORMATION
  Report Type: Spontaneous
  Country: IN (occurrence: IN)
  Receive Date: 20210820
  Receipt Date: 20210820
  Transmission Date: 20211014
  Serious: Yes (Hospitalization)
  Sender: FDA-Public Use
  Company Number: IN-ASTRAZENECA-2021A683111

PATIENT
  Age: 58 Year
  Sex: Female

DRUGS (13)
  1. FULVESTRANT. [Suspect]
     Active Substance: FULVESTRANT
     Dosage: ONCE EVERY THREE WEEK
     Route: 030
  2. ULTRACET [Concomitant]
     Active Substance: ACETAMINOPHEN\TRAMADOL HYDROCHLORIDE
     Indication: PAIN
     Dosage: TWO TIMES SOS AFTER FOOD
  3. PAN D [Concomitant]
     Dosage: TWO TIMES FOR THREE DAYS.
  4. DUPHALAC [Concomitant]
     Active Substance: LACTULOSE
     Indication: CONSTIPATION
     Dosage: AT NIGHT
  5. SHELCAL [Concomitant]
     Active Substance: CALCIUM CARBONATE\CHOLECALCIFEROL
     Dosage: DAILY
  6. FAROPENUM [Concomitant]
     Dosage: THREE TIMES FOR 14 DAYS
  7. ANASTRAZOLE [Concomitant]
     Active Substance: ANASTROZOLE
     Dosage: 60000 U WEEKLY X 8 WEEKS
  8. DOLO [Concomitant]
     Indication: PYREXIA
     Dosage: TWO TIMES FOR THREE DAYS.
  9. EMESET [Concomitant]
     Active Substance: ONDANSETRON HYDROCHLORIDE
     Indication: VOMITING
     Dosage: 1 SOS BEFORE FOOD
  10. CLARIBID [Concomitant]
     Active Substance: CLARITHROMYCIN
     Dosage: TWO TIMES FOR 7 DAYS
  11. FULVESTRANT. [Suspect]
     Active Substance: FULVESTRANT
     Dosage: 500 MG ON DAY 1, 15 AND 28 THEN MONTHLY
     Route: 030
  12. HEXADINE [Concomitant]
     Dosage: 3 TIMES DAILY FOR SIX MONTH.
  13. VITAMIN D [Concomitant]
     Active Substance: VITAMIN D NOS
     Dosage: 60000 U WEEKLY X 8 WEEKS

REACTIONS (2)
  - Laboratory test abnormal [Unknown]
  - Hospitalisation [Unknown]
